FAERS Safety Report 22302279 (Version 1)
Quarter: 2023Q2

REPORT INFORMATION
  Report Type: Spontaneous
  Country: US (occurrence: US)
  Receive Date: 20230510
  Receipt Date: 20230510
  Transmission Date: 20230721
  Serious: No
  Sender: FDA-Public Use
  Company Number: US-SPECGX-T202201372

PATIENT
  Sex: Male

DRUGS (1)
  1. METHADOSE [Suspect]
     Active Substance: METHADONE HYDROCHLORIDE
     Indication: Product used for unknown indication
     Dosage: 180 MILLIGRAM
     Route: 065

REACTIONS (4)
  - Dyspepsia [Unknown]
  - Dysphagia [Unknown]
  - Throat irritation [Not Recovered/Not Resolved]
  - Wheezing [Unknown]
